FAERS Safety Report 15831002 (Version 1)
Quarter: 2019Q1

REPORT INFORMATION
  Report Type: Spontaneous
  Country: US (occurrence: US)
  Receive Date: 20190114
  Receipt Date: 20190114
  Transmission Date: 20190417
  Serious: No
  Sender: FDA-Public Use
  Company Number: None

PATIENT
  Age: 24 Year
  Sex: Female

DRUGS (1)
  1. HYDROXYPROGESTERONE 250MG/ML (1ML SDV) [Suspect]
     Active Substance: HYDROXYPROGESTERONE
     Route: 030
     Dates: start: 201810

REACTIONS (6)
  - Thrombosis [None]
  - Pregnancy [None]
  - Post procedural haemorrhage [None]
  - Exposure during pregnancy [None]
  - Cervix disorder [None]
  - Threatened labour [None]

NARRATIVE: CASE EVENT DATE: 20190114
